FAERS Safety Report 9571110 (Version 3)
Quarter: 2013Q4

REPORT INFORMATION
  Report Type: Report from Study
  Country: US (occurrence: US)
  Receive Date: 20131001
  Receipt Date: 20131011
  Transmission Date: 20140711
  Serious: Yes (Hospitalization)
  Sender: FDA-Public Use
  Company Number: US-JNJFOC-20130914717

PATIENT
  Age: 12 Year
  Sex: Female
  Weight: 34.5 kg

DRUGS (8)
  1. REMICADE [Suspect]
     Indication: CROHN^S DISEASE
     Route: 042
     Dates: start: 20110828
  2. 6-MERCAPTOPURINE [Concomitant]
     Route: 065
  3. ZANTAC [Concomitant]
     Route: 065
  4. OMEPRAZOLE [Concomitant]
     Route: 065
  5. PEDIASURE [Concomitant]
     Route: 065
  6. CHOLECALCIFEROL [Concomitant]
     Route: 065
  7. URSODIOL [Concomitant]
     Route: 065
  8. MULTIVITAMINS [Concomitant]
     Route: 065

REACTIONS (1)
  - Clostridium difficile colitis [Recovered/Resolved]
